FAERS Safety Report 18659023 (Version 1)
Quarter: 2020Q4

REPORT INFORMATION
  Report Type: Spontaneous
  Country: US (occurrence: US)
  Receive Date: 20201223
  Receipt Date: 20201223
  Transmission Date: 20210114
  Serious: Yes (Hospitalization)
  Sender: FDA-Public Use
  Company Number: None

PATIENT
  Sex: Male
  Weight: 69.2 kg

DRUGS (2)
  1. CARBOPLATIN. [Suspect]
     Active Substance: CARBOPLATIN
     Dates: end: 20200408
  2. TAXOTERE [Concomitant]
     Active Substance: DOCETAXEL

REACTIONS (3)
  - Abdominal pain [None]
  - Femur fracture [None]
  - Constipation [None]

NARRATIVE: CASE EVENT DATE: 20200418
